FAERS Safety Report 6174359-1 (Version None)
Quarter: 2009Q2

REPORT INFORMATION
  Report Type: 
  Country: None (occurrence: None)
  Receive Date: 20090430
  Receipt Date: 20090427
  Transmission Date: 20091009
  Serious: Yes (Death, Other)
  Sender: FDA-Public Use
  Company Number: US-PURDUE-USA_2009_0037135

PATIENT
  Age: 18 Year
  Sex: Female
  Weight: 56 kg

DRUGS (5)
  1. OXYCONTIN [Suspect]
     Indication: DRUG ABUSE
     Dosage: UNK MG, UNK
     Route: 048
  2. ETHYL ALCOHOL [Suspect]
     Indication: ALCOHOL ABUSE
     Dosage: UNK, UNK
  3. VALIUM [Suspect]
     Indication: DRUG ABUSE
     Dosage: UNK MG, UNK
  4. CLONAZEPAM [Suspect]
     Indication: DRUG ABUSE
     Dosage: UNK, UNK
  5. SERTRALINE HCL [Suspect]
     Indication: DRUG ABUSE
     Dosage: UNK, UNK

REACTIONS (4)
  - DRUG ABUSE [None]
  - MULTIPLE DRUG OVERDOSE ACCIDENTAL [None]
  - PNEUMONIA [None]
  - UNRESPONSIVE TO STIMULI [None]
